FAERS Safety Report 9447556 (Version 1)
Quarter: 2013Q3

REPORT INFORMATION
  Report Type: Report from Study
  Country: US (occurrence: US)
  Receive Date: 20130808
  Receipt Date: 20130808
  Transmission Date: 20140515
  Serious: Yes (Other)
  Sender: FDA-Public Use
  Company Number: US-JNJFOC-20130801442

PATIENT
  Sex: 0

DRUGS (1)
  1. REMICADE [Suspect]
     Indication: INFLAMMATORY BOWEL DISEASE
     Route: 042

REACTIONS (3)
  - Short-bowel syndrome [Not Recovered/Not Resolved]
  - Intestinal resection [Unknown]
  - Drug ineffective [Unknown]
